FAERS Safety Report 4729329-4 (Version None)
Quarter: 2005Q3

REPORT INFORMATION
  Report Type: 
  Country: None (occurrence: None)
  Receive Date: 20050729
  Receipt Date: 20050718
  Transmission Date: 20060218
  Serious: Yes (Hospitalization)
  Sender: FDA-Public Use
  Company Number: GB-JNJFOC-20050703603

PATIENT
  Sex: Male

DRUGS (1)
  1. RISPERDAL [Suspect]
     Indication: ANXIETY
     Dates: end: 20050711

REACTIONS (4)
  - DELUSION [None]
  - MALAISE [None]
  - PARKINSONISM [None]
  - RESPIRATION ABNORMAL [None]
